FAERS Safety Report 13973245 (Version 1)
Quarter: 2017Q3

REPORT INFORMATION
  Report Type: Spontaneous
  Country: BR (occurrence: BR)
  Receive Date: 20170915
  Receipt Date: 20170915
  Transmission Date: 20171128
  Serious: Yes (Disabling)
  Sender: FDA-Public Use
  Company Number: BR-GALDERMA-BR17006722

PATIENT
  Sex: Female

DRUGS (1)
  1. EPIDUO [Suspect]
     Active Substance: ADAPALENE\BENZOYL PEROXIDE
     Indication: ACNE
     Route: 061
     Dates: start: 20170809, end: 20170810

REACTIONS (12)
  - Skin discomfort [Recovering/Resolving]
  - Pruritus [Recovering/Resolving]
  - Skin swelling [Recovering/Resolving]
  - Skin burning sensation [Recovering/Resolving]
  - Hypersensitivity [Recovering/Resolving]
  - Acne [Recovering/Resolving]
  - Skin exfoliation [Recovering/Resolving]
  - Dry skin [Not Recovered/Not Resolved]
  - Sleep disorder [Recovering/Resolving]
  - Erythema [Recovering/Resolving]
  - Skin fragility [Not Recovered/Not Resolved]
  - Loss of personal independence in daily activities [Recovering/Resolving]

NARRATIVE: CASE EVENT DATE: 20170811
